FAERS Safety Report 21349658 (Version 1)
Quarter: 2022Q3

REPORT INFORMATION
  Report Type: Spontaneous
  Country: JP (occurrence: JP)
  Receive Date: 20220919
  Receipt Date: 20220919
  Transmission Date: 20221027
  Serious: Yes (Other)
  Sender: FDA-Public Use
  Company Number: JP-PFIZER INC-PV202200057970

PATIENT
  Age: 45 Year
  Sex: Female

DRUGS (3)
  1. METHYLPREDNISOLONE SODIUM SUCCINATE [Suspect]
     Active Substance: METHYLPREDNISOLONE SODIUM SUCCINATE
     Indication: Anhidrosis
     Dosage: 1000 MG, DAILY FOR 3 DAYS
  2. CEVIMELINE HYDROCHLORIDE [Concomitant]
     Active Substance: CEVIMELINE HYDROCHLORIDE
     Indication: Anhidrosis
     Dosage: 90 MG, DAILY
     Route: 048
  3. SAIREITO [ALISMA ORIENTALE TUBER;ATRACTYLODES LANCEA RHIZOME;BUPLEURUM [Concomitant]
     Indication: Anhidrosis
     Dosage: 9 G, DAILY
     Route: 048

REACTIONS (3)
  - Diabetes insipidus [Recovering/Resolving]
  - Drug ineffective for unapproved indication [Unknown]
  - Off label use [Unknown]
